FAERS Safety Report 22275453 (Version 1)
Quarter: 2023Q2

REPORT INFORMATION
  Report Type: Spontaneous
  Country: ES (occurrence: ES)
  Receive Date: 20230502
  Receipt Date: 20230502
  Transmission Date: 20230722
  Serious: Yes (Other)
  Sender: FDA-Public Use
  Company Number: None

PATIENT
  Age: 60 Year
  Sex: Male

DRUGS (3)
  1. HYDROCHLOROTHIAZIDE\OLMESARTAN MEDOXOMIL [Suspect]
     Active Substance: HYDROCHLOROTHIAZIDE\OLMESARTAN MEDOXOMIL
     Indication: Hypertension
     Dosage: 1 DF (40 MG/12.5 MG)
     Route: 048
     Dates: start: 20230315, end: 2023
  2. OMEPRAZOL PENSA [OMEPRAZOLE] [Concomitant]
     Indication: Dyspepsia
     Dosage: UNK
     Route: 048
     Dates: start: 20230208, end: 20230407
  3. ESIDREX [Concomitant]
     Active Substance: HYDROCHLOROTHIAZIDE
     Indication: Abdominal pain
     Dosage: 25 MG
     Route: 048
     Dates: start: 20230404, end: 20230413

REACTIONS (3)
  - Depressed level of consciousness [Recovered/Resolved]
  - Asthenia [Recovered/Resolved]
  - Abdominal pain [Recovered/Resolved]

NARRATIVE: CASE EVENT DATE: 20230315
